FAERS Safety Report 13570005 (Version 1)
Quarter: 2017Q2

REPORT INFORMATION
  Report Type: Spontaneous
  Country: HR (occurrence: HR)
  Receive Date: 20170522
  Receipt Date: 20170522
  Transmission Date: 20170830
  Serious: Yes (Other)
  Sender: FDA-Public Use
  Company Number: PHHY2017HR069422

PATIENT
  Age: 16 Year
  Sex: Female
  Weight: 60 kg

DRUGS (1)
  1. SANVAL [Suspect]
     Active Substance: ZOLPIDEM TARTRATE
     Indication: PRODUCT USED FOR UNKNOWN INDICATION
     Dosage: 10 DF, UNK
     Route: 048
     Dates: start: 20170311

REACTIONS (3)
  - Suicide attempt [Unknown]
  - No adverse event [Unknown]
  - Intentional overdose [Unknown]

NARRATIVE: CASE EVENT DATE: 20170311
